FAERS Safety Report 7714580-1 (Version None)
Quarter: 2011Q3

REPORT INFORMATION
  Report Type: 
  Country: None (occurrence: None)
  Receive Date: 20110829
  Receipt Date: 20110823
  Transmission Date: 20111222
  Serious: Yes (Death, Other)
  Sender: FDA-Public Use
  Company Number: US-PFIZER INC-2010091930

PATIENT
  Sex: Female

DRUGS (4)
  1. CHANTIX [Suspect]
     Indication: SMOKING CESSATION THERAPY
     Dosage: ONE PILL IN THE MORNING AND EVENING
     Dates: start: 20090401, end: 20090622
  2. ATIVAN [Concomitant]
     Indication: ANXIETY
     Dosage: UNK
     Dates: start: 20060101, end: 20090601
  3. BUSPIRONE [Concomitant]
     Indication: ANXIETY
     Dosage: UNK
     Dates: start: 20080101, end: 20090601
  4. CITALOPRAM [Concomitant]
     Dosage: UNK
     Dates: start: 20080101, end: 20090601

REACTIONS (4)
  - DEPRESSION [None]
  - MOOD SWINGS [None]
  - COMPLETED SUICIDE [None]
  - ANXIETY [None]
